FAERS Safety Report 14067916 (Version 1)
Quarter: 2017Q4

REPORT INFORMATION
  Report Type: Spontaneous
  Country: US (occurrence: US)
  Receive Date: 20171009
  Receipt Date: 20171009
  Transmission Date: 20180321
  Serious: Yes (Death)
  Sender: FDA-Public Use
  Company Number: None

PATIENT
  Age: 85 Year
  Sex: Male
  Weight: 75.6 kg

DRUGS (4)
  1. DONEPEZIL. [Concomitant]
     Active Substance: DONEPEZIL
  2. FINASTERIDE. [Concomitant]
     Active Substance: FINASTERIDE
  3. CAPECITABINE. [Suspect]
     Active Substance: CAPECITABINE
     Indication: COLON CANCER
     Route: 048
     Dates: start: 20170824, end: 20171008
  4. METOPROLOL. [Concomitant]
     Active Substance: METOPROLOL

REACTIONS (1)
  - Death [None]

NARRATIVE: CASE EVENT DATE: 20171009
